FAERS Safety Report 9903292 (Version 1)
Quarter: 2014Q1

REPORT INFORMATION
  Report Type: Spontaneous
  Country: US (occurrence: US)
  Receive Date: 20140217
  Receipt Date: 20140217
  Transmission Date: 20141002
  Serious: No
  Sender: FDA-Public Use
  Company Number: US-GILEAD-2011-0044163

PATIENT
  Age: 79 Year
  Sex: Female

DRUGS (2)
  1. LETAIRIS [Suspect]
     Indication: PRODUCT USED FOR UNKNOWN INDICATION
     Route: 048
  2. TYVASO [Concomitant]

REACTIONS (6)
  - Asthenia [Unknown]
  - Fall [Unknown]
  - Weight increased [Unknown]
  - Throat irritation [Unknown]
  - Dry mouth [Unknown]
  - Dyspnoea [Unknown]
